FAERS Safety Report 24403523 (Version 2)
Quarter: 2024Q4

REPORT INFORMATION
  Report Type: Spontaneous
  Country: JP (occurrence: JP)
  Receive Date: 20241007
  Receipt Date: 20241008
  Transmission Date: 20250115
  Serious: Yes (Other)
  Sender: ELI LILLY AND CO
  Company Number: JP-ELI_LILLY_AND_COMPANY-JP202408004544

PATIENT
  Age: 67 Year
  Sex: Male

DRUGS (1)
  1. RETEVMO [Suspect]
     Active Substance: SELPERCATINIB
     Indication: Non-small cell lung cancer
     Dosage: 320 MG, UNKNOWN
     Route: 048

REACTIONS (4)
  - Pancreatitis [Not Recovered/Not Resolved]
  - Myelosuppression [Unknown]
  - Hypertension [Recovered/Resolved]
  - Pyrexia [Recovered/Resolved]
